FAERS Safety Report 24652181 (Version 2)
Quarter: 2025Q3

REPORT INFORMATION
  Report Type: Spontaneous
  Country: EU (occurrence: EU)
  Receive Date: 20241122
  Receipt Date: 20250803
  Transmission Date: 20251020
  Serious: Yes (Hospitalization)
  Sender: ALEXION PHARMACEUTICALS
  Company Number: EU-ASTRAZENECA-202411GLO012690FR

PATIENT
  Age: 38 Year
  Sex: Male

DRUGS (5)
  1. QUETIAPINE FUMARATE [Suspect]
     Active Substance: QUETIAPINE FUMARATE
  2. QUETIAPINE FUMARATE [Suspect]
     Active Substance: QUETIAPINE FUMARATE
  3. OLANZAPINE [Suspect]
     Active Substance: OLANZAPINE
  4. XANAX [Suspect]
     Active Substance: ALPRAZOLAM
  5. XANAX [Suspect]
     Active Substance: ALPRAZOLAM

REACTIONS (4)
  - Toxicity to various agents [Recovered/Resolved]
  - Intentional product misuse [Unknown]
  - Miosis [Unknown]
  - Psychomotor hyperactivity [Unknown]

NARRATIVE: CASE EVENT DATE: 20210401
